FAERS Safety Report 15202310 (Version 9)
Quarter: 2019Q1

REPORT INFORMATION
  Report Type: Spontaneous
  Country: US (occurrence: US)
  Receive Date: 20180726
  Receipt Date: 20190212
  Transmission Date: 20190417
  Serious: Yes (Hospitalization, Other)
  Sender: FDA-Public Use
  Company Number: US-PFIZER INC-2018297570

PATIENT
  Age: 90 Year
  Sex: Female
  Weight: 41 kg

DRUGS (8)
  1. RALOXIFENE. [Concomitant]
     Active Substance: RALOXIFENE
     Dosage: 1 DF, DAILY, [1 A DAY]
  2. LYRICA [Suspect]
     Active Substance: PREGABALIN
     Indication: PAIN
  3. LYRICA [Suspect]
     Active Substance: PREGABALIN
     Indication: ARTHRITIS
     Dosage: 25 MG, 2X/DAY
     Route: 048
     Dates: start: 2016
  4. LYRICA [Suspect]
     Active Substance: PREGABALIN
     Indication: NECK PAIN
  5. ADVIL [Concomitant]
     Active Substance: IBUPROFEN
     Dosage: 200 MG, 1X/DAY (IN THE MORNING/ 160 COUNT)
     Route: 048
     Dates: start: 2016
  6. LYRICA [Suspect]
     Active Substance: PREGABALIN
     Indication: CERVICAL SPINAL STENOSIS
     Dosage: 1 DF, 2X/DAY (1 BY MOUTH TWICE A DAY)
     Route: 048
     Dates: start: 201802
  7. ADVIL [Concomitant]
     Active Substance: IBUPROFEN
     Dosage: 2 DF, DAILY, [2 A DAY]
  8. RALOXIFENE. [Concomitant]
     Active Substance: RALOXIFENE
     Indication: OSTEOPOROSIS
     Dosage: 60 MG, DAILY

REACTIONS (6)
  - Intentional dose omission [Unknown]
  - Intentional product use issue [Unknown]
  - Drug effect incomplete [Unknown]
  - Fall [Unknown]
  - Hip fracture [Not Recovered/Not Resolved]
  - Musculoskeletal pain [Unknown]

NARRATIVE: CASE EVENT DATE: 2016
